FAERS Safety Report 9223019 (Version 1)
Quarter: 2013Q1

REPORT INFORMATION
  Report Type: Spontaneous
  Country: US (occurrence: None)
  Receive Date: 20120914
  Receipt Date: 20120914
  Transmission Date: 20140127
  Serious: Yes (Death, Hospitalization)
  Sender: FDA-Public Use
  Company Number: JPI-P-018906

PATIENT
  Age: 54 Year
  Sex: Female
  Weight: 49.9 kg

DRUGS (11)
  1. XYREM (500 MILLIGRAM/MILLILITERS, SOLUTION) (SODIUM OXYBATE) [Suspect]
     Indication: FIBROMYALGIA
     Route: 048
     Dates: start: 20080108, end: 2008
  2. XYREM (500 MILLIGRAM/MILLILITERS, SOLUTION) (SODIUM OXYBATE) [Suspect]
     Indication: NARCOLEPSY
     Route: 048
     Dates: start: 20080108, end: 2008
  3. VENLAFAXINE HYDROCHLORIDE [Concomitant]
  4. BUSPIRONE [Concomitant]
  5. ALPRAZOLAM [Concomitant]
  6. HYDROXYZINE [Concomitant]
  7. LEVOTHYROXINE [Concomitant]
  8. ROPINIROLE HYDROCHLORIDE [Concomitant]
  9. ACEBUTOLOL [Concomitant]
  10. INDOMETHACIN [Concomitant]
  11. CARISOPRODOL [Concomitant]

REACTIONS (2)
  - Completed suicide [None]
  - Depression [None]
